FAERS Safety Report 6709276-9 (Version None)
Quarter: 2010Q2

REPORT INFORMATION
  Report Type: 
  Country: None (occurrence: None)
  Receive Date: 20100426
  Receipt Date: 20090303
  Transmission Date: 20101027
  Serious: Yes (Other)
  Sender: FDA-Public Use
  Company Number: TEST00209000608

PATIENT
  Age: 63 Year
  Sex: Male
  Weight: 79.545 kg

DRUGS (7)
  1. ANDROGEL [Suspect]
     Indication: BLOOD TESTOSTERONE DECREASED
     Dosage: 5 GRAM(S) QD TRANSCUTANEOUS DAILY DOSE: 5 GRAM(S)
     Dates: start: 20060101, end: 20090226
  2. FLOMAX [Concomitant]
  3. ENALAPRIL MALEATE [Concomitant]
  4. FEXOFENADINE HCL [Concomitant]
  5. EYE DROPS FOR GLAUCOMA (EYE DROPS FOR GLAUCOMA) [Concomitant]
  6. CEREFOLIN (VITAMINS, L-METHYLFOLATE, CYANOCOBALAMIN) [Concomitant]
  7. OTC VITAMINS (OTC VITAMINS) [Concomitant]

REACTIONS (1)
  - PROSTATE CANCER [None]
